FAERS Safety Report 18646596 (Version 2)
Quarter: 2021Q1

REPORT INFORMATION
  Report Type: Report from Study
  Country: GB (occurrence: GB)
  Receive Date: 20201222
  Receipt Date: 20210204
  Transmission Date: 20210419
  Serious: Yes (Hospitalization, Other)
  Sender: FDA-Public Use
  Company Number: GB-JNJFOC-20201234904

PATIENT
  Age: 5 Decade
  Sex: Female

DRUGS (2)
  1. STELARA [Suspect]
     Active Substance: USTEKINUMAB
  2. STELARA [Suspect]
     Active Substance: USTEKINUMAB
     Indication: CROHN^S DISEASE
     Route: 058
     Dates: start: 20180605

REACTIONS (7)
  - Hepatitis [Unknown]
  - Lower respiratory tract infection [Unknown]
  - Renal failure [Unknown]
  - Pneumonia [Recovered/Resolved]
  - Sleep apnoea syndrome [Unknown]
  - Respiratory failure [Unknown]
  - Liver disorder [Unknown]

NARRATIVE: CASE EVENT DATE: 202012
